FAERS Safety Report 5712103-X (Version None)
Quarter: 2008Q2

REPORT INFORMATION
  Report Type: 
  Country: None (occurrence: None)
  Receive Date: 20080417
  Receipt Date: 20080403
  Transmission Date: 20081010
  Serious: Yes (Hospitalization, Disabling, Other)
  Sender: FDA-Public Use
  Company Number: CERZ-10837

PATIENT
  Age: 22 Year
  Sex: Male
  Weight: 36.8 kg

DRUGS (3)
  1. CEREZYME [Suspect]
     Indication: GAUCHER'S DISEASE
     Dosage: 90 U/KG, INTRAVENOUS, 60 U/KG, Q2W, INTRAVENOUS, 90 U/KG, Q2W, INTRAVENOUS
     Route: 042
     Dates: end: 20080101
  2. CEREZYME [Suspect]
     Indication: GAUCHER'S DISEASE
     Dosage: 90 U/KG, INTRAVENOUS, 60 U/KG, Q2W, INTRAVENOUS, 90 U/KG, Q2W, INTRAVENOUS
     Route: 042
     Dates: start: 20000120
  3. CEREZYME [Suspect]
     Indication: GAUCHER'S DISEASE
     Dosage: 90 U/KG, INTRAVENOUS, 60 U/KG, Q2W, INTRAVENOUS, 90 U/KG, Q2W, INTRAVENOUS
     Route: 042
     Dates: start: 20080124

REACTIONS (20)
  - ANAEMIA [None]
  - ASTHENIA [None]
  - BRADYCARDIA [None]
  - CARDIAC FAILURE [None]
  - CARDIOMYOPATHY [None]
  - DRUG HYPERSENSITIVITY [None]
  - ELECTROCARDIOGRAM QT PROLONGED [None]
  - HAEMODIALYSIS [None]
  - HEPATITIS C [None]
  - HYPERCALCAEMIA [None]
  - HYPOTENSION [None]
  - MITRAL VALVE INCOMPETENCE [None]
  - PALPITATIONS [None]
  - PERICARDIAL EFFUSION [None]
  - PLEURAL EFFUSION [None]
  - PULMONARY HYPERTENSION [None]
  - PULMONARY VALVE INCOMPETENCE [None]
  - RENAL FAILURE CHRONIC [None]
  - TRICUSPID VALVE INCOMPETENCE [None]
  - VENTRICULAR EXTRASYSTOLES [None]
